FAERS Safety Report 17572963 (Version 1)
Quarter: 2020Q1

REPORT INFORMATION
  Report Type: Spontaneous
  Country: US (occurrence: US)
  Receive Date: 20200323
  Receipt Date: 20200323
  Transmission Date: 20200409
  Serious: No
  Sender: FDA-Public Use
  Company Number: US-TEVA-2020-US-1206673

PATIENT
  Age: 59 Year
  Sex: Male

DRUGS (1)
  1. HYDROXYZINE HYDROCHLORIDE TEVA [Suspect]
     Active Substance: HYDROXYZINE HYDROCHLORIDE
     Route: 065
     Dates: start: 201801, end: 20200303

REACTIONS (3)
  - Drug ineffective [Unknown]
  - Abdominal discomfort [Unknown]
  - Nightmare [Unknown]

NARRATIVE: CASE EVENT DATE: 20200124
